FAERS Safety Report 12176747 (Version 1)
Quarter: 2016Q1

REPORT INFORMATION
  Report Type: Spontaneous
  Country: ES (occurrence: ES)
  Receive Date: 20160315
  Receipt Date: 20160315
  Transmission Date: 20160526
  Serious: Yes (Other)
  Sender: FDA-Public Use
  Company Number: ES-AMGEN-ESPSP2015117880

PATIENT
  Age: 65 Year
  Sex: Female

DRUGS (22)
  1. ENBREL [Suspect]
     Active Substance: ETANERCEPT
     Indication: RHEUMATOID ARTHRITIS
     Dosage: 50 MG, WEEKLY (ON MONDAYS)
     Route: 058
     Dates: start: 20151027
  2. AAS [Concomitant]
     Active Substance: ASPIRIN
     Dosage: UNK UNK, TID
  3. TRAZODONE [Concomitant]
     Active Substance: TRAZODONE HYDROCHLORIDE
     Indication: PAIN
     Dosage: 100 MG, 3X/DAY (EVERY 8 HOURS)
  4. GELOTRADOL [Concomitant]
     Indication: PAIN
     Dosage: 100 MG, 2X/DAY (EVERY 12 HOURS)
  5. MORPHINE [Concomitant]
     Active Substance: MORPHINE
     Dosage: ONCE DF EVERY 24 HOURS
  6. OMEPRAZOLE. [Concomitant]
     Active Substance: OMEPRAZOLE
     Indication: PROPHYLAXIS
     Dosage: 20 MG, 1X/DAY (IN MORNINGS)
  7. LYRICA [Concomitant]
     Active Substance: PREGABALIN
     Dosage: 75 MG, 2X/DAY (EVERY 12 HOURS)
  8. PARACETAMOL [Concomitant]
     Active Substance: ACETAMINOPHEN
     Indication: PAIN
     Dosage: 1 OR 2 1X/DAY AS NEEDED
  9. MOTIVAN                            /00830802/ [Concomitant]
     Dosage: 20 MG, 3X/DAY (EVERY 8 HOURS)
  10. DOXAZOSIN [Concomitant]
     Active Substance: DOXAZOSIN\DOXAZOSIN MESYLATE
     Indication: PAIN
     Dosage: 8 MG, 1X/DAY
  11. BLOKIUM                            /00372302/ [Concomitant]
     Indication: HYPERTENSION
     Dosage: 50 MG 1X/DAY (EVERY 24 HOURS DURING BREAKFAST)
  12. DIANBEN [Concomitant]
     Active Substance: METFORMIN HYDROCHLORIDE
     Indication: DIABETES MELLITUS
     Dosage: 1000 MG, 3X/DAY (EVERY 8 HOURS)
  13. GLIMEPIRIDE. [Concomitant]
     Active Substance: GLIMEPIRIDE
     Indication: DIABETES MELLITUS
     Dosage: 4 MG, 1X/DAY (EVERY 24 HOURS)
  14. AAS [Concomitant]
     Active Substance: ASPIRIN
     Indication: PAIN
     Dosage: 100 MG, 2X/DAY
  15. CAPENON HCT [Concomitant]
     Active Substance: AMLODIPINE BESYLATE\HYDROCHLOROTHIAZIDE\OLMESARTAN MEDOXOMIL
     Indication: HYPERTENSION
     Dosage: 40 MG, 2X/DAY (EVERY 12 HOURS)
  16. HIDROFEROL [Concomitant]
     Active Substance: CALCIFEDIOL
     Dosage: 1 DF, CYCLIC (1 AMPOULE EVERY 30 DAYS)
  17. DEPRAX                             /00447702/ [Concomitant]
     Active Substance: TRAZODONE HYDROCHLORIDE
     Dosage: 100 MG, 2X/DAY (EVRY 12 HOURS)
  18. ADIRO [Concomitant]
     Active Substance: ASPIRIN
     Indication: PERIPHERAL VASCULAR DISORDER
     Dosage: 100 MG, 1X/DAY
  19. ENBREL [Suspect]
     Active Substance: ETANERCEPT
     Dosage: 50 MG, WEEKLY
     Route: 058
  20. ENBREL [Suspect]
     Active Substance: ETANERCEPT
     Dosage: 50 MG, WEEKLY (ON TUESDAYS)
     Route: 058
  21. VICTOZA [Concomitant]
     Active Substance: LIRAGLUTIDE
     Indication: DIABETES MELLITUS
     Dosage: 1.8 MG, 1X/DAY
  22. TARDYFERON [Concomitant]
     Active Substance: FERROUS SULFATE\FOLIC ACID
     Dosage: 80 MG, 2X/DAY

REACTIONS (12)
  - Arthralgia [Unknown]
  - Dyspnoea [Unknown]
  - Telangiectasia [Unknown]
  - Discomfort [Unknown]
  - Dizziness [Unknown]
  - Asphyxia [Unknown]
  - Epistaxis [Unknown]
  - Contusion [Unknown]
  - Pain in extremity [Unknown]
  - Drug ineffective [Unknown]
  - Injection site pain [Unknown]
  - Injection site erythema [Unknown]

NARRATIVE: CASE EVENT DATE: 2015
